FAERS Safety Report 19647307 (Version 1)
Quarter: 2021Q3

REPORT INFORMATION
  Report Type: Spontaneous
  Country: US (occurrence: US)
  Receive Date: 20210802
  Receipt Date: 20210802
  Transmission Date: 20211014
  Serious: Yes (Other)
  Sender: FDA-Public Use
  Company Number: US-ELI_LILLY_AND_COMPANY-US202107009607

PATIENT
  Sex: Female

DRUGS (5)
  1. LEVEMIR [Concomitant]
     Active Substance: INSULIN DETEMIR
     Indication: TYPE 1 DIABETES MELLITUS
     Dosage: 40 U, DAILY (AT NIGHT)
  2. HUMALOG [Suspect]
     Active Substance: INSULIN LISPRO
     Dosage: 24?30 U, TID
     Route: 058
  3. HUMALOG [Suspect]
     Active Substance: INSULIN LISPRO
     Indication: TYPE 1 DIABETES MELLITUS
     Dosage: 24?30 U, TID
     Route: 058
  4. HUMALOG [Suspect]
     Active Substance: INSULIN LISPRO
     Indication: TYPE 1 DIABETES MELLITUS
     Dosage: 24?30 U, TID
     Route: 058
  5. HUMALOG [Suspect]
     Active Substance: INSULIN LISPRO
     Dosage: 24?30 U, TID
     Route: 058

REACTIONS (10)
  - Autonomic neuropathy [Unknown]
  - Retinopathy [Unknown]
  - Rheumatoid arthritis [Unknown]
  - Diabetic neuropathy [Unknown]
  - Retinal tear [Unknown]
  - Cataract [Not Recovered/Not Resolved]
  - Blood glucose increased [Recovered/Resolved]
  - Eye haemorrhage [Unknown]
  - Eye swelling [Unknown]
  - Subcutaneous drug absorption impaired [Unknown]

NARRATIVE: CASE EVENT DATE: 2013
